FAERS Safety Report 18887496 (Version 6)
Quarter: 2021Q3

REPORT INFORMATION
  Report Type: Spontaneous
  Country: US (occurrence: US)
  Receive Date: 20210212
  Receipt Date: 20210922
  Transmission Date: 20211014
  Serious: Yes (Hospitalization, Other)
  Sender: FDA-Public Use
  Company Number: US-TAKEDA-2021TUS006801

PATIENT
  Age: 59 Year
  Sex: Female
  Weight: 102 kg

DRUGS (2)
  1. NINLARO [Suspect]
     Active Substance: IXAZOMIB CITRATE
     Indication: PLASMA CELL MYELOMA
     Dosage: 3 MILLIGRAM
     Route: 048
     Dates: start: 20201118
  2. REVLIMID [Concomitant]
     Active Substance: LENALIDOMIDE
     Dosage: 10 MILLIGRAM
     Route: 065
     Dates: start: 20200914

REACTIONS (15)
  - Oxygen saturation decreased [Unknown]
  - Blood potassium decreased [Unknown]
  - Flatulence [Unknown]
  - Diarrhoea [Unknown]
  - Urinary hesitation [Unknown]
  - Neuropathy peripheral [Unknown]
  - Peripheral swelling [Unknown]
  - Abdominal pain upper [Unknown]
  - Hypokalaemia [Unknown]
  - Mental status changes [Unknown]
  - Chest pain [Unknown]
  - Muscle spasms [Unknown]
  - COVID-19 [Unknown]
  - Nausea [Unknown]
  - Vomiting [Unknown]

NARRATIVE: CASE EVENT DATE: 20210224
